FAERS Safety Report 6689712-7 (Version None)
Quarter: 2010Q2

REPORT INFORMATION
  Report Type: 
  Country: None (occurrence: None)
  Receive Date: 20100421
  Receipt Date: 20100409
  Transmission Date: 20101027
  Serious: Yes (Other)
  Sender: FDA-Public Use
  Company Number: CN-BAYER-200941671GPV

PATIENT
  Age: 33 Year
  Sex: Female

DRUGS (1)
  1. YASMIN [Suspect]
     Indication: CONTRACEPTION
     Route: 048
     Dates: start: 20091101

REACTIONS (4)
  - DYSPHONIA [None]
  - VAGINAL HAEMORRHAGE [None]
  - VOCAL CORD THICKENING [None]
  - VULVOVAGINAL PRURITUS [None]
